FAERS Safety Report 5078677-X (Version None)
Quarter: 2006Q3

REPORT INFORMATION
  Report Type: 
  Country: None (occurrence: None)
  Receive Date: 20060809
  Receipt Date: 20060809
  Transmission Date: 20061208
  Serious: No
  Sender: FDA-Public Use
  Company Number: None

PATIENT
  Age: 51 Year
  Sex: Female
  Weight: 97.5234 kg

DRUGS (2)
  1. ADVIL COLD AND SINUS [Suspect]
     Indication: NASAL CONGESTION
     Dosage: 2 CAPSULES 1 Q 4 HRS PO
     Route: 048
     Dates: start: 20060807, end: 20060807
  2. ADVIL COLD AND SINUS [Suspect]
     Indication: NASOPHARYNGITIS
     Dosage: 2 CAPSULES 1 Q 4 HRS PO
     Route: 048
     Dates: start: 20060807, end: 20060807

REACTIONS (1)
  - SWELLING FACE [None]
